FAERS Safety Report 25037587 (Version 1)
Quarter: 2025Q1

REPORT INFORMATION
  Report Type: Spontaneous
  Country: US (occurrence: None)
  Receive Date: 20250304
  Receipt Date: 20250304
  Transmission Date: 20250408
  Serious: No
  Sender: FDA-CTU
  Company Number: None

PATIENT
  Age: 73 Year
  Sex: Female
  Weight: 38.25 kg

DRUGS (6)
  1. BROMPHENIRAMINE MALEATE\DEXTROMETHORPHAN HYDROBROMIDE\PSEUDOEPHEDRINE [Suspect]
     Active Substance: BROMPHENIRAMINE MALEATE\DEXTROMETHORPHAN HYDROBROMIDE\PSEUDOEPHEDRINE HYDROCHLORIDE
     Indication: Influenza
     Dosage: 7 ML 4 TIMES A DAY ORAL
     Route: 048
  2. SYNTHROID [Concomitant]
     Active Substance: LEVOTHYROXINE SODIUM
  3. ASPIRIN [Concomitant]
     Active Substance: ASPIRIN
  4. PROBIOTICS NOS [Concomitant]
     Active Substance: PROBIOTICS NOS
  5. VITAMIN B [Concomitant]
     Active Substance: VITAMIN B
  6. C [Concomitant]

REACTIONS (11)
  - Chest discomfort [None]
  - Dyspnoea [None]
  - Movement disorder [None]
  - Arthralgia [None]
  - Abdominal pain [None]
  - Vision blurred [None]
  - Headache [None]
  - Dizziness [None]
  - Abdominal discomfort [None]
  - Nausea [None]
  - Oropharyngeal pain [None]

NARRATIVE: CASE EVENT DATE: 20250225
